FAERS Safety Report 16226357 (Version 1)
Quarter: 2019Q2

REPORT INFORMATION
  Report Type: Spontaneous
  Country: FR (occurrence: FR)
  Receive Date: 20190423
  Receipt Date: 20190423
  Transmission Date: 20190711
  Serious: Yes (Other)
  Sender: FDA-Public Use
  Company Number: FR-AUROBINDO-AUR-APL-2019-021576

PATIENT

DRUGS (2)
  1. OXYCODONE [Suspect]
     Active Substance: OXYCODONE
     Indication: PRODUCT USED FOR UNKNOWN INDICATION
     Dosage: 80 MILLIGRAM,TOTAL
     Route: 048
     Dates: start: 201810
  2. INSTANYL [Suspect]
     Active Substance: FENTANYL
     Indication: PAIN
     Dosage: 2 MILLIGRAM, ONCE A DAY
     Route: 045

REACTIONS (2)
  - Off label use [Recovering/Resolving]
  - Drug tolerance [Recovering/Resolving]

NARRATIVE: CASE EVENT DATE: 201903
